FAERS Safety Report 15101764 (Version 2)
Quarter: 2018Q3

REPORT INFORMATION
  Report Type: Spontaneous
  Country: IT (occurrence: IT)
  Receive Date: 20180703
  Receipt Date: 20180706
  Transmission Date: 20181010
  Serious: Yes (Hospitalization)
  Sender: FDA-Public Use
  Company Number: IT-TEVA-2018-IT-917115

PATIENT
  Age: 55 Year
  Sex: Female

DRUGS (7)
  1. TRITTICO 100 MG COMPRESSE RIVESTITE CON FILM [Suspect]
     Active Substance: TRAZODONE HYDROCHLORIDE
     Route: 048
     Dates: start: 20180119, end: 20180119
  2. TRITTICO 150 MG COMPRESSE RIVESTITE CON FILM A RILASCIO PROLUNGATO C [Suspect]
     Active Substance: TRAZODONE HYDROCHLORIDE
     Route: 048
     Dates: start: 20180119, end: 20180119
  3. TAVOR (LORAZEPAM) [Suspect]
     Active Substance: LORAZEPAM
     Route: 048
     Dates: start: 20180119, end: 20180119
  4. GABAPENTIN. [Suspect]
     Active Substance: GABAPENTIN
     Route: 048
     Dates: start: 20180119, end: 20180119
  5. TRITTICO 150 MG COMPRESSE RIVESTITE CON FILM A RILASCIO PROLUNGATO C [Suspect]
     Active Substance: TRAZODONE HYDROCHLORIDE
     Dosage: 400 MG, (4 DF, TOTAL)
     Route: 048
     Dates: start: 20180119, end: 20180119
  6. TRITTICO 150 MG COMPRESSE RIVESTITE CON FILM A RILASCIO PROLUNGATO C [Suspect]
     Active Substance: TRAZODONE HYDROCHLORIDE
     Route: 048
     Dates: start: 20180119, end: 20180119
  7. LYRICA [Suspect]
     Active Substance: PREGABALIN
     Route: 048
     Dates: start: 20180119, end: 20180119

REACTIONS (4)
  - Suicide attempt [Recovering/Resolving]
  - Drug abuse [Recovering/Resolving]
  - Intentional overdose [Recovering/Resolving]
  - Sopor [Recovering/Resolving]

NARRATIVE: CASE EVENT DATE: 20180119
